FAERS Safety Report 16589298 (Version 1)
Quarter: 2019Q3

REPORT INFORMATION
  Report Type: Spontaneous
  Country: DE (occurrence: DE)
  Receive Date: 20190718
  Receipt Date: 20190718
  Transmission Date: 20191004
  Serious: Yes (Life-Threatening, Hospitalization, Other)
  Sender: FDA-Public Use
  Company Number: DE-TEVA-2019-DE-1077972

PATIENT
  Age: 97 Year
  Sex: Female
  Weight: 50 kg

DRUGS (4)
  1. BISOPROLOL [Suspect]
     Active Substance: BISOPROLOL
     Dosage: 2.5 MG, 1-0-0-0, TABLETS
     Route: 048
  2. IRBESARTAN. [Concomitant]
     Active Substance: IRBESARTAN
     Dosage: 150 MG, 1-0-0-0, TABLETS
     Route: 048
  3. LEVOTHYROXIN-NATRIUM [Concomitant]
     Active Substance: LEVOTHYROXINE SODIUM
     Dosage: 50 ?G, 1-0-0-0, TABLETS
     Route: 048
  4. ACETYLSALICYLS?URE [Concomitant]
     Active Substance: ASPIRIN
     Dosage: 100 MG, 1-0-0-0, TABLETS
     Route: 048

REACTIONS (9)
  - Asthenia [Unknown]
  - Electrocardiogram abnormal [Unknown]
  - Nausea [Unknown]
  - Syncope [Unknown]
  - Bradycardia [Unknown]
  - Vomiting [Unknown]
  - Hypertension [Unknown]
  - Product prescribing error [Unknown]
  - Fatigue [Unknown]
